FAERS Safety Report 10348426 (Version 3)
Quarter: 2014Q3

REPORT INFORMATION
  Report Type: Spontaneous
  Country: CO (occurrence: None)
  Receive Date: 20140725
  Receipt Date: 20140807
  Transmission Date: 20150326
  Serious: Yes (Other)
  Sender: FDA-Public Use
  Company Number: 2014-20036

PATIENT
  Age: 73 Year
  Sex: Female

DRUGS (6)
  1. BETALOC [Concomitant]
     Active Substance: METOPROLOL TARTRATE
  2. LOSARTAN (LOSARTAN) [Concomitant]
     Active Substance: LOSARTAN
  3. FUROSEMIDE (FUROSEMIDE) [Concomitant]
     Active Substance: FUROSEMIDE
  4. EYLIA (AFLIBERCEPT) [Suspect]
     Active Substance: AFLIBERCEPT
     Indication: AGE-RELATED MACULAR DEGENERATION
     Route: 031
     Dates: start: 20130415, end: 20140509
  5. METFORMIN [Concomitant]
     Active Substance: METFORMIN HYDROCHLORIDE
  6. EYLEA [Suspect]
     Active Substance: AFLIBERCEPT
     Indication: AGE-RELATED MACULAR DEGENERATION
     Route: 031
     Dates: start: 20130415, end: 20140509

REACTIONS (8)
  - Vision blurred [None]
  - Visual impairment [None]
  - Inappropriate schedule of drug administration [None]
  - Blindness unilateral [None]
  - Ocular hyperaemia [None]
  - Retinal oedema [None]
  - Eye pain [None]
  - Eye haemorrhage [None]

NARRATIVE: CASE EVENT DATE: 20140430
